FAERS Safety Report 10677422 (Version 2)
Quarter: 2018Q4

REPORT INFORMATION
  Report Type: Spontaneous
  Country: US (occurrence: US)
  Receive Date: 20141227
  Receipt Date: 20181120
  Transmission Date: 20190204
  Serious: Yes (Other)
  Sender: FDA-Public Use
  Company Number: US-SA-2014SA178313

PATIENT
  Age: 13 Year
  Sex: Male

DRUGS (1)
  1. CEREZYME [Suspect]
     Active Substance: IMIGLUCERASE
     Indication: GAUCHER^S DISEASE
     Dosage: 4400; UNITS: UNKNOWN; Q2
     Route: 042
     Dates: start: 20061019

REACTIONS (3)
  - Productive cough [Recovering/Resolving]
  - Bronchitis [Recovering/Resolving]
  - Pyrexia [Recovering/Resolving]
